FAERS Safety Report 9703544 (Version 1)
Quarter: 2013Q4

REPORT INFORMATION
  Report Type: Spontaneous
  Country: US (occurrence: US)
  Receive Date: 20131122
  Receipt Date: 20131122
  Transmission Date: 20140711
  Serious: Yes (Other)
  Sender: FDA-Public Use
  Company Number: US-009507513-1311USA008747

PATIENT
  Sex: Female

DRUGS (2)
  1. FOSAMAX [Suspect]
     Dosage: UNK
     Dates: start: 2013, end: 2013
  2. ACYCLOVIR [Concomitant]
     Indication: HERPES SIMPLEX

REACTIONS (7)
  - Surgery [Unknown]
  - Fractured sacrum [Unknown]
  - Oropharyngeal pain [Unknown]
  - Herpes simplex [Unknown]
  - Bone pain [Unknown]
  - Constipation [Unknown]
  - Diarrhoea [Unknown]
